FAERS Safety Report 14756696 (Version 1)
Quarter: 2018Q2

REPORT INFORMATION
  Report Type: Spontaneous
  Country: HR (occurrence: HR)
  Receive Date: 20180413
  Receipt Date: 20180413
  Transmission Date: 20180711
  Serious: Yes (Death, Other)
  Sender: FDA-Public Use
  Company Number: HR-ROCHE-2104515

PATIENT
  Age: 35 Year
  Sex: Female

DRUGS (1)
  1. DIAZEPAM. [Suspect]
     Active Substance: DIAZEPAM
     Indication: GENERALISED TONIC-CLONIC SEIZURE
     Route: 042

REACTIONS (4)
  - Stillbirth [Unknown]
  - Maternal exposure during pregnancy [Unknown]
  - Cardio-respiratory arrest [Fatal]
  - Aortic dissection [Fatal]
